FAERS Safety Report 7888753-1 (Version None)
Quarter: 2011Q4

REPORT INFORMATION
  Report Type: 
  Country: None (occurrence: None)
  Receive Date: 20111103
  Receipt Date: 20111021
  Transmission Date: 20120403
  Serious: Yes (Hospitalization)
  Sender: FDA-Public Use
  Company Number: JP-ELI_LILLY_AND_COMPANY-JP201108006362

PATIENT
  Age: 77 Year
  Sex: Female

DRUGS (2)
  1. FORTEO [Suspect]
     Dosage: UNK
     Route: 058
     Dates: start: 20110819
  2. FORTEO [Suspect]
     Dosage: UNK
     Route: 058
     Dates: start: 20110316, end: 20110816

REACTIONS (2)
  - DIZZINESS [None]
  - HOSPITALISATION [None]
